FAERS Safety Report 12882904 (Version 2)
Quarter: 2017Q1

REPORT INFORMATION
  Report Type: Spontaneous
  Country: US (occurrence: US)
  Receive Date: 20161025
  Receipt Date: 20170303
  Transmission Date: 20170428
  Serious: Yes (Death, Hospitalization, Other)
  Sender: FDA-Public Use
  Company Number: US-009507513-1610USA013120

PATIENT
  Sex: Male
  Weight: 125.17 kg

DRUGS (4)
  1. JANUMET [Suspect]
     Active Substance: METFORMIN HYDROCHLORIDE\SITAGLIPTIN PHOSPHATE
     Indication: DIABETES MELLITUS
     Dosage: 50/1000MG, 1 DF, QD
     Route: 048
     Dates: start: 20110719, end: 201402
  2. JANUMET [Suspect]
     Active Substance: METFORMIN HYDROCHLORIDE\SITAGLIPTIN PHOSPHATE
     Dosage: 50/1000MG 1 DF, OCCASIONALLY BID
     Route: 048
     Dates: start: 20110719, end: 201402
  3. VITAMINS (UNSPECIFIED) [Concomitant]
     Active Substance: VITAMINS
     Indication: ROUTINE HEALTH MAINTENANCE
     Dosage: UNK, UNKNOWN
     Route: 048
     Dates: start: 2009, end: 201411
  4. TUMS [Concomitant]
     Active Substance: CALCIUM CARBONATE
     Indication: ABDOMINAL DISCOMFORT
     Dosage: UNK, UNKNOWN
     Route: 048
     Dates: start: 2009, end: 201411

REACTIONS (19)
  - Vertigo [Unknown]
  - Anxiety [Unknown]
  - Ventricular extrasystoles [Unknown]
  - Contusion [Unknown]
  - Chronic kidney disease [Unknown]
  - Atrial fibrillation [Unknown]
  - Prostatomegaly [Unknown]
  - Palpitations [Unknown]
  - Back pain [Unknown]
  - Pancreatic carcinoma [Fatal]
  - Malignant ascites [Unknown]
  - Diverticulum [Unknown]
  - Pleural effusion [Unknown]
  - Neuropathy peripheral [Unknown]
  - Metastasis [Fatal]
  - Cholecystitis chronic [Unknown]
  - Hyperlipidaemia [Unknown]
  - Osteoarthritis [Unknown]
  - Lipoma [Unknown]

NARRATIVE: CASE EVENT DATE: 201112
